FAERS Safety Report 18863874 (Version 7)
Quarter: 2021Q2

REPORT INFORMATION
  Report Type: Report from Study
  Country: US (occurrence: US)
  Receive Date: 20210208
  Receipt Date: 20210603
  Transmission Date: 20210717
  Serious: Yes (Other)
  Sender: FDA-Public Use
  Company Number: NVSC2021US022464

PATIENT
  Sex: Female

DRUGS (2)
  1. ENTRESTO [Suspect]
     Active Substance: SACUBITRIL\VALSARTAN
     Indication: PRODUCT USED FOR UNKNOWN INDICATION
     Dosage: 1 DF, BID (49/51 MG)
     Route: 048
     Dates: start: 202010
  2. ELIQUIS [Concomitant]
     Active Substance: APIXABAN
     Indication: PRODUCT USED FOR UNKNOWN INDICATION
     Dosage: UNK
     Route: 065

REACTIONS (10)
  - Fall [Recovering/Resolving]
  - Injury [Recovering/Resolving]
  - Gait disturbance [Unknown]
  - Product dose omission issue [Unknown]
  - Skin cancer [Unknown]
  - Decreased activity [Unknown]
  - Fatigue [Recovering/Resolving]
  - Phobia [Unknown]
  - Contusion [Recovering/Resolving]
  - Product dose omission in error [Unknown]
